FAERS Safety Report 9284532 (Version 2)
Quarter: 2013Q2

REPORT INFORMATION
  Report Type: Report from Study
  Country: US (occurrence: US)
  Receive Date: 20130510
  Receipt Date: 20130529
  Transmission Date: 20140414
  Serious: Yes (Death)
  Sender: FDA-Public Use
  Company Number: US-ROCHE-1223590

PATIENT
  Age: 63 Year
  Sex: Male

DRUGS (2)
  1. XELODA [Suspect]
     Indication: OESOPHAGEAL CANCER METASTATIC
     Dosage: DATE OF LAST DOSE TAKEN: 25/OCT/2012
     Route: 048
     Dates: start: 20120614
  2. XELODA [Suspect]
     Indication: HEPATIC CANCER

REACTIONS (1)
  - Oesophageal cancer metastatic [Fatal]
